FAERS Safety Report 8145275-0 (Version None)
Quarter: 2012Q1

REPORT INFORMATION
  Report Type: 
  Country: None (occurrence: None)
  Receive Date: 20120217
  Receipt Date: 20120215
  Transmission Date: 20120608
  Serious: Yes (Death, Life-Threatening, Hospitalization)
  Sender: FDA-Public Use
  Company Number: PHHO2011ES10358

PATIENT
  Sex: Female
  Weight: 67 kg

DRUGS (6)
  1. CARBOPLATIN [Suspect]
     Dosage: 471.83 MG, UNK
     Dates: start: 20110601, end: 20110601
  2. GEMCITABINE [Suspect]
     Dosage: 1614 MG, UNK
     Dates: start: 20110601, end: 20110608
  3. HERCEPTIN [Concomitant]
     Dosage: 402 MG, UNK
     Dates: start: 20110601, end: 20110601
  4. HERCEPTIN [Suspect]
     Indication: BREAST CANCER METASTATIC
     Dosage: 2 MG/KG, QW
     Route: 042
     Dates: start: 20101207, end: 20110524
  5. BKM120 [Suspect]
     Indication: BREAST CANCER METASTATIC
     Dosage: 50 MG, QD
     Route: 048
     Dates: start: 20101214, end: 20110530
  6. CHEMOTHERAPEUTICS NOS [Concomitant]

REACTIONS (4)
  - HYPOTENSION [None]
  - DIARRHOEA [None]
  - RESPIRATORY FAILURE [None]
  - HYPOVOLAEMIC SHOCK [None]
